FAERS Safety Report 18570881 (Version 2)
Quarter: 2020Q4

REPORT INFORMATION
  Report Type: Spontaneous
  Country: CN (occurrence: CN)
  Receive Date: 20201202
  Receipt Date: 20201208
  Transmission Date: 20210114
  Serious: Yes (Other)
  Sender: FDA-Public Use
  Company Number: CN-ASTRAZENECA-2020SF58954

PATIENT
  Sex: Male
  Weight: 50 kg

DRUGS (2)
  1. IRESSA [Suspect]
     Active Substance: GEFITINIB
     Indication: LUNG NEOPLASM MALIGNANT
     Dosage: 0.25G, ONCE A DAY, ONE TABLET AT A TIME,
     Route: 048
     Dates: start: 20201001, end: 20201128
  2. IRESSA [Suspect]
     Active Substance: GEFITINIB
     Indication: LUNG NEOPLASM MALIGNANT
     Route: 048
     Dates: start: 20201001

REACTIONS (2)
  - Haemoptysis [Recovered/Resolved]
  - Epidermal necrosis [Not Recovered/Not Resolved]
